FAERS Safety Report 23280128 (Version 2)
Quarter: 2023Q4

REPORT INFORMATION
  Report Type: Spontaneous
  Country: ES (occurrence: ES)
  Receive Date: 20231210
  Receipt Date: 20231222
  Transmission Date: 20240109
  Serious: Yes (Death, Hospitalization, Other)
  Sender: FDA-Public Use
  Company Number: ES-AMGEN-ESPSP2023136352

PATIENT
  Age: 72 Year
  Sex: Male

DRUGS (9)
  1. PEGFILGRASTIM [Suspect]
     Active Substance: PEGFILGRASTIM
     Indication: Prophylaxis
     Dosage: 6 MILLIGRAM ON DAY 02
     Route: 058
     Dates: start: 2021
  2. CAPECITABINE [Concomitant]
     Active Substance: CAPECITABINE
     Dosage: 625 MILLIGRAM/SQ. METER
     Route: 065
     Dates: start: 2022
  3. CAPECITABINE [Concomitant]
     Active Substance: CAPECITABINE
     Indication: Neuroendocrine carcinoma metastatic
     Dosage: 625 MILLIGRAM/SQ. METER, Q12H ON DAYS 1-14 EVERY 21 DAYS
     Route: 065
     Dates: start: 2022
  4. CAPECITABINE [Concomitant]
     Active Substance: CAPECITABINE
     Dosage: REDUCED DOSE
     Route: 065
     Dates: start: 2022
  5. CARBOPLATIN [Concomitant]
     Active Substance: CARBOPLATIN
     Indication: Neuroendocrine carcinoma metastatic
     Dosage: UNK UNK, Q3WK
     Route: 065
     Dates: start: 2021
  6. CARBOPLATIN [Concomitant]
     Active Substance: CARBOPLATIN
     Dosage: 25 % REDUCTION SINCE THE SECOND CYCLE
     Route: 065
     Dates: start: 2021
  7. ETOPOSIDE [Concomitant]
     Active Substance: ETOPOSIDE
     Indication: Neuroendocrine carcinoma metastatic
     Dosage: 100 MILLIGRAM/SQ. METER ON DAYS 01 TO 03
     Route: 065
     Dates: start: 2021
  8. ETOPOSIDE [Concomitant]
     Active Substance: ETOPOSIDE
     Dosage: 25 % REDUCTION SINCE THE SECOND CYCLE
     Route: 065
     Dates: start: 2021
  9. STREPTOZOCIN [Concomitant]
     Active Substance: STREPTOZOCIN
     Indication: Neuroendocrine carcinoma metastatic
     Dosage: 1 GRAM PER SQUARE METRE ON DAY ONE
     Route: 065
     Dates: start: 2022

REACTIONS (9)
  - Pulmonary sepsis [Fatal]
  - Myelosuppression [Recovered/Resolved]
  - Palmar-plantar erythrodysaesthesia syndrome [Recovered/Resolved]
  - Mucosal inflammation [Recovered/Resolved]
  - Neuroendocrine carcinoma metastatic [Unknown]
  - Neutropenia [Unknown]
  - Aphasia [Unknown]
  - Asthenia [Unknown]
  - Pain [Unknown]

NARRATIVE: CASE EVENT DATE: 20210101
